FAERS Safety Report 22046550 (Version 1)
Quarter: 2023Q1

REPORT INFORMATION
  Report Type: Spontaneous
  Country: SE (occurrence: SE)
  Receive Date: 20230228
  Receipt Date: 20230228
  Transmission Date: 20230418
  Serious: Yes (Hospitalization)
  Sender: FDA-Public Use
  Company Number: None

PATIENT
  Age: 58 Year
  Sex: Female
  Weight: 64 kg

DRUGS (5)
  1. RYBREVANT [Suspect]
     Active Substance: AMIVANTAMAB-VMJW
     Indication: Lung adenocarcinoma
     Route: 042
     Dates: start: 20211115
  2. POTASSIUM CHLORIDE [Concomitant]
     Active Substance: POTASSIUM CHLORIDE
     Dosage: 750 MG 1X1
     Route: 048
     Dates: start: 20220322
  3. DOXYCYCLINE [Concomitant]
     Active Substance: DOXYCYCLINE
     Dosage: 100 MG 1X2 I PERIODER VID UTTALADE HUDBESVAR
     Route: 048
     Dates: start: 20210414
  4. MAGNESIUM HYDROXIDE [Concomitant]
     Active Substance: MAGNESIUM HYDROXIDE
     Dosage: 250 MG 1X1
     Route: 048
     Dates: start: 20190912
  5. PULMICORT TURBUHALER [Concomitant]
     Active Substance: BUDESONIDE
     Dosage: 400 MIKROGRAM/DOS 1-2X2
     Route: 055
     Dates: start: 20190416

REACTIONS (1)
  - Pneumothorax [Unknown]

NARRATIVE: CASE EVENT DATE: 20230216
